FAERS Safety Report 18412730 (Version 1)
Quarter: 2020Q4

REPORT INFORMATION
  Report Type: Spontaneous
  Country: DE (occurrence: DE)
  Receive Date: 20201021
  Receipt Date: 20201021
  Transmission Date: 20210114
  Serious: Yes (Hospitalization)
  Sender: FDA-Public Use
  Company Number: DE-BAUSCH-BL-2020-029719

PATIENT
  Age: 53 Year
  Sex: Male

DRUGS (3)
  1. JAKAVI [Concomitant]
     Active Substance: RUXOLITINIB
     Indication: MYELOFIBROSIS
     Dosage: 2X20 MG PER DAY
     Route: 065
     Dates: start: 201607, end: 201707
  2. JAKAVI [Concomitant]
     Active Substance: RUXOLITINIB
     Dosage: 2X15 MG PER DAY
     Route: 065
     Dates: start: 201707, end: 201709
  3. ACICLOVIR [Suspect]
     Active Substance: ACYCLOVIR
     Indication: HERPES ZOSTER
     Route: 065
     Dates: start: 2017, end: 2017

REACTIONS (6)
  - Weight decreased [Unknown]
  - Chills [Recovering/Resolving]
  - Malaise [Recovering/Resolving]
  - Night sweats [Unknown]
  - Pyrexia [Recovering/Resolving]
  - Hypersensitivity [Recovering/Resolving]

NARRATIVE: CASE EVENT DATE: 2017
